FAERS Safety Report 5486947-6 (Version None)
Quarter: 2007Q4

REPORT INFORMATION
  Report Type: 
  Country: None (occurrence: None)
  Receive Date: 20071012
  Receipt Date: 20071012
  Transmission Date: 20080405
  Serious: Yes (Hospitalization)
  Sender: FDA-Public Use
  Company Number: None

PATIENT
  Age: 78 Year
  Sex: Male

DRUGS (1)
  1. ENOXAPARIN SODIUM [Suspect]
     Indication: ARTERIAL THROMBOSIS
     Dosage: 100MG EVERY DAY SQ
     Route: 058
     Dates: start: 20070810, end: 20070813

REACTIONS (1)
  - RETROPERITONEAL HAEMATOMA [None]
